FAERS Safety Report 6370385-8 (Version None)
Quarter: 2009Q3

REPORT INFORMATION
  Report Type: 
  Country: None (occurrence: None)
  Receive Date: 20090923
  Receipt Date: 20090916
  Transmission Date: 20100115
  Serious: Yes (Hospitalization)
  Sender: FDA-Public Use
  Company Number: GB-WYE-G04329009

PATIENT
  Sex: Male

DRUGS (2)
  1. GEMTUZUMAB OZOGAMICIN [Suspect]
     Indication: ACUTE MYELOID LEUKAEMIA
     Dosage: UNKNOWN
     Dates: start: 20090720, end: 20090828
  2. ARA-C [Suspect]
     Dosage: UNKNOWN

REACTIONS (4)
  - BODY TEMPERATURE INCREASED [None]
  - CHEST PAIN [None]
  - CHILLS [None]
  - HYPOTENSION [None]
